FAERS Safety Report 15016991 (Version 1)
Quarter: 2018Q2

REPORT INFORMATION
  Report Type: Spontaneous
  Country: US (occurrence: US)
  Receive Date: 20180523
  Receipt Date: 20180523
  Transmission Date: 20180711
  Serious: Yes (Hospitalization)
  Sender: FDA-Public Use
  Company Number: None

PATIENT
  Age: 21 Year
  Sex: Female

DRUGS (1)
  1. NEULASTA [Suspect]
     Active Substance: PEGFILGRASTIM
     Indication: RENAL CANCER
     Dosage: OTHER FREQUENCY:9 DAYS OF CYCLE ;?
     Route: 058
     Dates: start: 20180325

REACTIONS (3)
  - Back pain [None]
  - Bone marrow disorder [None]
  - White blood cell count decreased [None]

NARRATIVE: CASE EVENT DATE: 20180325
